FAERS Safety Report 8209705-8 (Version None)
Quarter: 2012Q1

REPORT INFORMATION
  Report Type: 
  Country: None (occurrence: None)
  Receive Date: 20120314
  Receipt Date: 20120307
  Transmission Date: 20120608
  Serious: Yes (Disabling, Other)
  Sender: FDA-Public Use
  Company Number: US-US-EMD SERONO, INC.-7089752

PATIENT
  Sex: Female

DRUGS (1)
  1. REBIF [Suspect]
     Indication: MULTIPLE SCLEROSIS
     Route: 058
     Dates: start: 20070215

REACTIONS (7)
  - INFLUENZA LIKE ILLNESS [None]
  - URINARY TRACT INFECTION [None]
  - IMMOBILE [None]
  - PALLOR [None]
  - RASH [None]
  - APHASIA [None]
  - INJECTION SITE ERYTHEMA [None]
